FAERS Safety Report 9136246 (Version 1)
Quarter: 2013Q1

REPORT INFORMATION
  Report Type: Spontaneous
  Country: US (occurrence: US)
  Receive Date: 20130304
  Receipt Date: 20130304
  Transmission Date: 20140127
  Serious: No
  Sender: FDA-Public Use
  Company Number: US-ABBOTT-12P-163-0929714-00

PATIENT
  Sex: Male

DRUGS (12)
  1. ANDROGEL 1% [Suspect]
     Indication: PRODUCT USED FOR UNKNOWN INDICATION
     Dosage: 6 PUMPS DAILY
     Route: 061
  2. ANDROGEL 1% [Suspect]
     Dosage: 4 PUMPS DAILY
     Route: 061
  3. ANDROGEL 1.62% [Suspect]
     Indication: BLOOD TESTOSTERONE DECREASED
     Dosage: 3 PUMPS DAILY
     Route: 061
  4. ANDROGEL 1.62% [Suspect]
     Route: 061
  5. ATIVAN [Concomitant]
     Indication: ANXIETY
  6. METHOTREXATE [Concomitant]
     Indication: MYOSITIS
     Route: 048
  7. FOLIC ACID [Concomitant]
     Indication: PRODUCT USED FOR UNKNOWN INDICATION
  8. UNKNOWN MEDICATION [Concomitant]
     Indication: MUSCLE SPASMS
  9. UNKNOWN MEDICATION [Concomitant]
     Indication: MUSCLE SPASMS
  10. COZAAR [Concomitant]
     Indication: PRODUCT USED FOR UNKNOWN INDICATION
     Route: 048
  11. CORGARD [Concomitant]
     Indication: PRODUCT USED FOR UNKNOWN INDICATION
  12. MULTIVITAMIN [Concomitant]
     Indication: PRODUCT USED FOR UNKNOWN INDICATION

REACTIONS (2)
  - Blood testosterone decreased [Recovering/Resolving]
  - Blood glucose increased [Not Recovered/Not Resolved]
